FAERS Safety Report 11343772 (Version 1)
Quarter: 2015Q3

REPORT INFORMATION
  Report Type: Report from Study
  Country: AU (occurrence: AU)
  Receive Date: 20150806
  Receipt Date: 20150806
  Transmission Date: 20151125
  Serious: Yes (Death, Other)
  Sender: FDA-Public Use
  Company Number: AU-CELGENE-AUS-2015080003

PATIENT

DRUGS (1)
  1. POMALIDOMIDE [Suspect]
     Active Substance: POMALIDOMIDE
     Indication: PLASMA CELL MYELOMA
     Dosage: RANGING FROM 1 TO 5MG BETWEEN PATIENTS
     Route: 048
     Dates: start: 201004, end: 201402

REACTIONS (10)
  - Infection [Unknown]
  - Thrombocytopenia [Unknown]
  - Toxicity to various agents [Unknown]
  - Respiratory tract infection [Unknown]
  - Diarrhoea [Unknown]
  - Febrile neutropenia [Unknown]
  - Deep vein thrombosis [Unknown]
  - Constipation [Unknown]
  - Plasma cell myeloma [Fatal]
  - Anaemia [Unknown]
